FAERS Safety Report 4577462-2 (Version None)
Quarter: 2005Q1

REPORT INFORMATION
  Report Type: 
  Country: None (occurrence: None)
  Receive Date: 20050208
  Receipt Date: 20050127
  Transmission Date: 20050727
  Serious: Yes (Life-Threatening, Hospitalization)
  Sender: FDA-Public Use
  Company Number: USA-2004-0018147

PATIENT
  Age: 66 Year
  Sex: Female

DRUGS (9)
  1. CEFDITOREN PIVOXIL (SIMILAR TO NDA 21-222) (CEFDITOREN PIVOXIL) [Suspect]
     Indication: BRONCHITIS ACUTE
     Dosage: 300 MG,  SINGLE, ORAL
     Route: 048
     Dates: start: 20041029, end: 20041029
  2. THEOLONG [Concomitant]
  3. KIPRES (MONTELUKAST SODIUM) [Concomitant]
  4. MUCODYNE (CARBOCISTEINE0 [Concomitant]
  5. EXCELASE (ENZYMES NOS) [Concomitant]
  6. HOKUNALIN (TULOBUTEROL HYDROCHLORIDE) [Concomitant]
  7. PULMICORT [Concomitant]
  8. TERSIGAN (OXITROPIUM BROMIDE) [Concomitant]
  9. MARZULENE-S [Concomitant]

REACTIONS (2)
  - ANAPHYLACTIC SHOCK [None]
  - DEPRESSED LEVEL OF CONSCIOUSNESS [None]
